FAERS Safety Report 23600899 (Version 1)
Quarter: 2024Q1

REPORT INFORMATION
  Report Type: Spontaneous
  Country: GB (occurrence: GB)
  Receive Date: 20240306
  Receipt Date: 20240306
  Transmission Date: 20240410
  Serious: Yes (Other)
  Sender: FDA-Public Use
  Company Number: None

PATIENT

DRUGS (17)
  1. SEVOFLURANE [Suspect]
     Active Substance: SEVOFLURANE
     Indication: Bronchospasm
     Dosage: 2-6ML/HR
     Route: 055
     Dates: start: 20220508, end: 20220510
  2. KETAMINE [Concomitant]
     Active Substance: KETAMINE
     Indication: Sedation
     Dates: start: 20220508, end: 20220510
  3. FENTANYL [Concomitant]
     Active Substance: FENTANYL\FENTANYL CITRATE
     Indication: Sedation
     Dates: start: 20220508, end: 20220514
  4. ALBUTEROL [Concomitant]
     Active Substance: ALBUTEROL
     Indication: Bronchospasm
     Dates: start: 20220509, end: 20220517
  5. LEVOFLOXACIN [Concomitant]
     Active Substance: LEVOFLOXACIN
     Indication: Infection
     Dates: start: 20220508, end: 20220517
  6. PROPOFOL [Concomitant]
     Active Substance: PROPOFOL
     Indication: Sedation
     Dates: start: 20220508, end: 20220518
  7. HYDROCORTISONE [Concomitant]
     Active Substance: HYDROCORTISONE
     Indication: Bronchospasm
     Dates: start: 20220509, end: 20220517
  8. ASCORBIC ACID\VITAMIN B COMPLEX [Concomitant]
     Active Substance: ASCORBIC ACID\VITAMIN B COMPLEX
     Indication: Adverse drug reaction
     Dates: start: 20220509, end: 20220513
  9. SENNA [Concomitant]
     Active Substance: SENNA LEAF\SENNOSIDES\SENNOSIDES A AND B
     Indication: Constipation
     Dates: start: 20220509, end: 20220517
  10. IPRATROPIUM [Concomitant]
     Active Substance: IPRATROPIUM
     Indication: Bronchospasm
     Dates: start: 20220508, end: 20220517
  11. POLYETHYLENE GLYCOLS [Concomitant]
     Active Substance: POLYETHYLENE GLYCOLS
     Indication: Constipation
     Dates: start: 20220509, end: 20220515
  12. METOCLOPRAMIDE [Concomitant]
     Active Substance: METOCLOPRAMIDE
     Indication: Adverse drug reaction
     Dates: start: 20220510, end: 20220513
  13. METRONIDAZOLE [Concomitant]
     Active Substance: METRONIDAZOLE
     Indication: Infection
     Dates: start: 20220508, end: 20220513
  14. ROCURONIUM [Concomitant]
     Active Substance: ROCURONIUM BROMIDE
     Indication: Paralysis
     Dates: start: 20220508, end: 20220510
  15. PANTOPRAZOLE [Concomitant]
     Active Substance: PANTOPRAZOLE
     Indication: Antacid therapy
     Dates: start: 20220509, end: 20220515
  16. NOREPINEPHRINE [Concomitant]
     Active Substance: NOREPINEPHRINE\NOREPINEPHRINE BITARTRATE
     Indication: Hypotension
     Dates: start: 20220508, end: 20220510
  17. LACTULOSE [Concomitant]
     Active Substance: LACTULOSE
     Indication: Constipation
     Dates: start: 20220509, end: 20220617

REACTIONS (1)
  - Nephropathy toxic [Unknown]

NARRATIVE: CASE EVENT DATE: 20220510
